FAERS Safety Report 7239339-3 (Version None)
Quarter: 2011Q1

REPORT INFORMATION
  Report Type: 
  Country: None (occurrence: None)
  Receive Date: 20110121
  Receipt Date: 20110117
  Transmission Date: 20110831
  Serious: Yes (Other)
  Sender: FDA-Public Use
  Company Number: DE-PFIZER INC-2010033375

PATIENT
  Age: 79 Year
  Sex: Female

DRUGS (7)
  1. QUETIAPINE [Suspect]
     Dosage: UNK
  2. PANTOZOL [Suspect]
     Dosage: 10 TABLETS OF 40 MG
     Route: 048
  3. PARACETAMOL [Suspect]
     Dosage: UNK
  4. CAFFEINE [Suspect]
     Dosage: UNK
  5. ACETYLSALICYLIC ACID [Suspect]
     Dosage: UNK
  6. LYRICA [Suspect]
     Dosage: UNK
  7. PIPAMPERONE [Suspect]
     Dosage: UNK

REACTIONS (4)
  - SUICIDE ATTEMPT [None]
  - SOMNOLENCE [None]
  - CONFUSIONAL STATE [None]
  - BODY TEMPERATURE DECREASED [None]
